FAERS Safety Report 8815489 (Version 2)
Quarter: 2012Q4

REPORT INFORMATION
  Report Type: Report from Study
  Country: DE (occurrence: DE)
  Receive Date: 20120928
  Receipt Date: 20121026
  Transmission Date: 20130627
  Serious: Yes (Hospitalization)
  Sender: FDA-Public Use
  Company Number: DE-GLAXOSMITHKLINE-B0831085B

PATIENT
  Age: 59 Year
  Sex: Female
  Weight: 80 kg

DRUGS (10)
  1. LAPATINIB [Suspect]
     Indication: BREAST CANCER
     Dosage: 500MG per day
     Route: 048
     Dates: start: 20120816, end: 20120923
  2. PACLITAXEL [Suspect]
     Indication: BREAST CANCER
     Dosage: 80MGM2 Weekly
     Route: 042
     Dates: start: 20120816
  3. DOXORUBICIN [Suspect]
     Indication: BREAST CANCER
     Route: 042
     Dates: start: 20120816
  4. TRASTUZUMAB [Suspect]
     Indication: BREAST CANCER
     Dosage: 6MGK per day
     Route: 042
     Dates: start: 20120816
  5. CARBOPLATIN [Suspect]
     Indication: BREAST CANCER
     Route: 042
     Dates: start: 20120816
  6. L-THYROXIN [Concomitant]
     Dosage: 100UG per day
     Dates: start: 1998
  7. METOPROLOL [Concomitant]
     Dosage: 50MG per day
     Dates: start: 2002
  8. ASS [Concomitant]
     Dosage: 100MG per day
     Dates: start: 2002
  9. PRAVASTATIN [Concomitant]
     Dosage: 20MG per day
     Dates: start: 2002
  10. PRAMIPEXOLE [Concomitant]
     Dosage: .18MG per day
     Dates: start: 2002

REACTIONS (3)
  - Diarrhoea [Recovered/Resolved]
  - Vomiting [Recovered/Resolved]
  - Pulmonary embolism [Recovered/Resolved]
